FAERS Safety Report 15830677 (Version 1)
Quarter: 2018Q4

REPORT INFORMATION
  Report Type: Spontaneous
  Country: US (occurrence: US)
  Receive Date: 20181218
  Receipt Date: 20181218
  Transmission Date: 20190205
  Serious: Yes (Other)
  Sender: FDA-Public Use
  Company Number: None

PATIENT
  Age: 73 Year
  Sex: Female
  Weight: 90 kg

DRUGS (8)
  1. SKIN CREAM [Concomitant]
     Active Substance: UNSPECIFIED INGREDIENT
  2. SPIROLOLACTONE [Concomitant]
  3. CIPROFLOXACIN HCL 500 MG TABLET [Suspect]
     Active Substance: CIPROFLOXACIN HYDROCHLORIDE
     Indication: INFECTION PROPHYLAXIS
     Dosage: ?          QUANTITY:14 DF DOSAGE FORM;?
     Route: 048
  4. CLINDAMYCIN 300MG [Suspect]
     Active Substance: CLINDAMYCIN PHOSPHATE
  5. TEASPOON OF VINEGAR WITH A TEASPOON  SOUR CHERRY SYRUP [Concomitant]
  6. 1/4 TEASPOON TURMERIC IN 2 TABLESPOONS OF APPLE SAUCE [Concomitant]
  7. ALLEGRA [Suspect]
     Active Substance: FEXOFENADINE HYDROCHLORIDE
  8. BABY ASPIRIN [Concomitant]
     Active Substance: ASPIRIN

REACTIONS (7)
  - Exostosis [None]
  - Arthralgia [None]
  - Weight bearing difficulty [None]
  - Pain in extremity [None]
  - Condition aggravated [None]
  - Musculoskeletal pain [None]
  - Flank pain [None]

NARRATIVE: CASE EVENT DATE: 20180526
